FAERS Safety Report 4512792-1 (Version None)
Quarter: 2004Q4

REPORT INFORMATION
  Report Type: 
  Country: None (occurrence: None)
  Receive Date: 20041119
  Receipt Date: 20041119
  Transmission Date: 20050328
  Serious: Yes (Hospitalization)
  Sender: FDA-Public Use
  Company Number: None

PATIENT
  Age: 41 Year
  Sex: Male

DRUGS (4)
  1. AUGMENTIN '500' [Suspect]
  2. METHYLPREDNISOLONE [Concomitant]
  3. OXYCODONE AND ACETAMINOPHEN [Concomitant]
  4. . [Concomitant]

REACTIONS (3)
  - NAUSEA [None]
  - SWELLING FACE [None]
  - VOMITING [None]
